FAERS Safety Report 4588539-X (Version None)
Quarter: 2005Q1

REPORT INFORMATION
  Report Type: 
  Country: None (occurrence: None)
  Receive Date: 20050222
  Receipt Date: 20041202
  Transmission Date: 20050727
  Serious: Yes (Hospitalization)
  Sender: FDA-Public Use
  Company Number: 200414531FR

PATIENT
  Age: 50 Year
  Sex: Male

DRUGS (11)
  1. CLAFORAN [Suspect]
     Indication: CITROBACTER INFECTION
     Route: 042
     Dates: start: 20041029, end: 20041104
  2. CLAFORAN [Suspect]
     Indication: PNEUMONIA
     Route: 042
     Dates: start: 20041029, end: 20041104
  3. PRIMPERAN TAB [Suspect]
     Route: 048
     Dates: start: 20041027, end: 20041103
  4. AUGMENTIN '125' [Suspect]
     Route: 042
     Dates: start: 20041025, end: 20041029
  5. BURINEX [Suspect]
     Route: 042
     Dates: start: 20041022, end: 20041103
  6. NEXIUM [Suspect]
     Route: 048
     Dates: start: 20041022, end: 20041107
  7. PERFALGAN [Suspect]
     Route: 042
     Dates: start: 20041022, end: 20041104
  8. CIPROFLOXACIN HCL [Suspect]
     Indication: CITROBACTER INFECTION
     Dates: start: 20041029, end: 20041104
  9. CIPROFLOXACIN HCL [Suspect]
     Indication: PNEUMONIA
     Dates: start: 20041029, end: 20041104
  10. SURBRONC [Suspect]
     Dates: start: 20041030, end: 20041103
  11. EUPRESSYL [Suspect]
     Route: 048
     Dates: start: 20041101, end: 20041104

REACTIONS (3)
  - CITROBACTER INFECTION [None]
  - CYTOLYTIC HEPATITIS [None]
  - PNEUMONIA [None]
